FAERS Safety Report 10825302 (Version 1)
Quarter: 2015Q1

REPORT INFORMATION
  Report Type: Spontaneous
  Country: FR (occurrence: None)
  Receive Date: 20150213
  Receipt Date: 20150213
  Transmission Date: 20150721
  Serious: Yes (Hospitalization)
  Sender: FDA-Public Use
  Company Number: 2014BI035975

PATIENT
  Age: 43 Year
  Sex: Female

DRUGS (6)
  1. LAROXYL [Concomitant]
     Active Substance: AMITRIPTYLINE
  2. LIORESAL [Concomitant]
     Active Substance: BACLOFEN
  3. TYSABRI [Suspect]
     Active Substance: NATALIZUMAB
     Indication: MULTIPLE SCLEROSIS
     Route: 042
     Dates: start: 201209, end: 20140331
  4. CYMBALTA [Concomitant]
     Active Substance: DULOXETINE HYDROCHLORIDE
  5. NEURONTIN [Concomitant]
     Active Substance: GABAPENTIN
  6. CONTRAMAL [Concomitant]
     Active Substance: TRAMADOL HYDROCHLORIDE

REACTIONS (5)
  - Generalised tonic-clonic seizure [None]
  - JC virus test positive [None]
  - Immune reconstitution inflammatory syndrome [None]
  - Progressive multifocal leukoencephalopathy [None]
  - Status epilepticus [None]

NARRATIVE: CASE EVENT DATE: 201403
